FAERS Safety Report 16304518 (Version 1)
Quarter: 2019Q2

REPORT INFORMATION
  Report Type: Spontaneous
  Country: US (occurrence: US)
  Receive Date: 20190510
  Receipt Date: 20190510
  Transmission Date: 20190711
  Serious: No
  Sender: FDA-Public Use
  Company Number: None

PATIENT
  Age: 64 Year
  Sex: Female
  Weight: 81 kg

DRUGS (4)
  1. TRINTELLIX [Suspect]
     Active Substance: VORTIOXETINE HYDROBROMIDE
     Indication: DEPRESSION
     Route: 048
     Dates: start: 20190503, end: 20190510
  2. OMEPRAZOLE 20 MG [Concomitant]
     Active Substance: OMEPRAZOLE
     Dates: start: 20180111
  3. ATORVASTATIN CALCIUM. [Concomitant]
     Active Substance: ATORVASTATIN CALCIUM
     Dates: start: 20170924
  4. VESICARE (SOLIDENACIN SUCCINATE) 5 MG [Concomitant]
     Dates: start: 20190215

REACTIONS (4)
  - Toxicity to various agents [None]
  - Headache [None]
  - Nausea [None]
  - Feeling abnormal [None]

NARRATIVE: CASE EVENT DATE: 20190510
